FAERS Safety Report 5102122-9 (Version None)
Quarter: 2006Q3

REPORT INFORMATION
  Report Type: 
  Country: None (occurrence: None)
  Receive Date: 20060911
  Receipt Date: 20060817
  Transmission Date: 20061208
  Serious: Yes (Congenital Anomaly)
  Sender: FDA-Public Use
  Company Number: GB-GILEAD-2006-0010081

PATIENT
  Age: 30 Year
  Sex: Female

DRUGS (4)
  1. VIREAD [Suspect]
     Route: 048
  2. DIDANOSINE [Concomitant]
     Route: 048
  3. ATAZANAVIR [Concomitant]
     Route: 048
  4. RITONAVIR [Concomitant]
     Route: 048

REACTIONS (3)
  - DRUG EXPOSURE DURING PREGNANCY [None]
  - PREGNANCY [None]
  - ULTRASOUND ANTENATAL SCREEN ABNORMAL [None]
